FAERS Safety Report 7250523-5 (Version None)
Quarter: 2011Q1

REPORT INFORMATION
  Report Type: 
  Country: None (occurrence: None)
  Receive Date: 20110128
  Receipt Date: 20110120
  Transmission Date: 20110831
  Serious: Yes (Other)
  Sender: FDA-Public Use
  Company Number: PHHY2010NL57893

PATIENT
  Sex: Male

DRUGS (13)
  1. MORPHINE PUMP [Concomitant]
  2. PANADOL [Concomitant]
  3. SINAPRIL [Concomitant]
  4. SPIRIVA [Concomitant]
  5. SODIUM CHLORIDE [Concomitant]
     Dosage: 100 ML, UNK
  6. ZOMETA [Suspect]
     Indication: LUNG NEOPLASM MALIGNANT
     Dosage: 4 MG/ 5 ML, 20MIN
     Route: 042
     Dates: start: 20100723
  7. ZOMETA [Suspect]
     Dosage: 4 MG/ 5 ML
     Route: 042
     Dates: start: 20100811
  8. ZOMETA [Suspect]
     Dosage: 4 MG/ 5 ML
     Route: 042
     Dates: start: 20100901
  9. ZOMETA [Suspect]
     Dosage: 4 MG/ 5 ML
     Route: 042
     Dates: start: 20100922, end: 20110106
  10. DICLOFENAC [Concomitant]
  11. METOPROLOL [Concomitant]
  12. MOVICOLON [Concomitant]
  13. PANTOZOL [Concomitant]

REACTIONS (7)
  - METASTASES TO BONE [None]
  - METASTASES TO MUSCLE [None]
  - NEOPLASM MALIGNANT [None]
  - BONE PAIN [None]
  - PAIN IN JAW [None]
  - TERMINAL STATE [None]
  - TUMOUR PAIN [None]
